FAERS Safety Report 6915328-0 (Version None)
Quarter: 2010Q3

REPORT INFORMATION
  Report Type: 
  Country: None (occurrence: None)
  Receive Date: 20100806
  Receipt Date: 20100806
  Transmission Date: 20110219
  Serious: Yes (Other)
  Sender: FDA-Public Use
  Company Number: None

PATIENT
  Age: 37 Year
  Sex: Male
  Weight: 56.6996 kg

DRUGS (1)
  1. LEVSIN PB [Suspect]
     Indication: ABDOMINAL PAIN UPPER
     Dates: start: 20100216, end: 20100505

REACTIONS (4)
  - FEELING HOT [None]
  - HYPOHIDROSIS [None]
  - PRURITUS [None]
  - RASH [None]
